FAERS Safety Report 5199161-9 (Version None)
Quarter: 2007Q1

REPORT INFORMATION
  Report Type: 
  Country: None (occurrence: None)
  Receive Date: 20070104
  Receipt Date: 20061226
  Transmission Date: 20070707
  Serious: Yes (Other)
  Sender: FDA-Public Use
  Company Number: US-PFIZER INC-2006112886

PATIENT
  Sex: Male
  Weight: 72.6 kg

DRUGS (5)
  1. LIPITOR [Suspect]
     Indication: BLOOD CHOLESTEROL INCREASED
     Route: 065
     Dates: start: 20030101, end: 20060101
  2. LIPITOR [Suspect]
     Indication: HYPERLIPIDAEMIA
  3. TOPROL-XL [Concomitant]
     Route: 065
  4. LISINOPRIL [Concomitant]
     Route: 065
  5. THYROID TAB [Concomitant]
     Route: 065

REACTIONS (5)
  - AGITATION [None]
  - ANGER [None]
  - BLOOD SODIUM DECREASED [None]
  - PNEUMONIA [None]
  - WEIGHT INCREASED [None]
